FAERS Safety Report 24137234 (Version 1)
Quarter: 2024Q3

REPORT INFORMATION
  Report Type: Spontaneous
  Country: US (occurrence: None)
  Receive Date: 20240724
  Receipt Date: 20240724
  Transmission Date: 20241016
  Serious: No
  Sender: Public
  Company Number: None

PATIENT
  Sex: Male
  Weight: 133.2 kg

DRUGS (10)
  1. OZEMPIC [Suspect]
     Active Substance: SEMAGLUTIDE
     Indication: Diabetes mellitus
     Dosage: 1 INJECTION WEEKLY SUBCUTANEOUS
     Route: 058
     Dates: start: 20240406, end: 20240704
  2. TAMSULOSIN HYDROCHLORIDE [Concomitant]
     Active Substance: TAMSULOSIN HYDROCHLORIDE
  3. SACUBITRIL/VASARTAN [Concomitant]
  4. SPIRONOLACTONE [Concomitant]
     Active Substance: SPIRONOLACTONE
  5. ATORVASTATIN CALCIUM [Concomitant]
     Active Substance: ATORVASTATIN CALCIUM
  6. INSULIN [Concomitant]
  7. REG HUM [Concomitant]
  8. EMPAGLIFLOZIN [Concomitant]
     Active Substance: EMPAGLIFLOZIN
  9. FLECAINIDE ACETATE [Concomitant]
     Active Substance: FLECAINIDE ACETATE
  10. OMEPRAZOLE [Concomitant]
     Active Substance: OMEPRAZOLE

REACTIONS (5)
  - Eructation [None]
  - Diarrhoea [None]
  - Abdominal pain upper [None]
  - Abdominal discomfort [None]
  - Malaise [None]
